FAERS Safety Report 13654016 (Version 1)
Quarter: 2017Q2

REPORT INFORMATION
  Report Type: Spontaneous
  Country: FR (occurrence: FR)
  Receive Date: 20170614
  Receipt Date: 20170614
  Transmission Date: 20170830
  Serious: Yes (Hospitalization, Disabling)
  Sender: FDA-Public Use
  Company Number: FR-BAUSCH-BL-2017-018534

PATIENT
  Age: 17 Year
  Sex: Female

DRUGS (2)
  1. XENAZINE [Suspect]
     Active Substance: TETRABENAZINE
     Indication: DYSTONIA
     Route: 065
     Dates: start: 2014, end: 20160826
  2. MICROPAKINE [Concomitant]
     Active Substance: VALPROIC ACID
     Indication: EPILEPSY

REACTIONS (3)
  - Off label use [Unknown]
  - Condition aggravated [Recovered/Resolved]
  - Early onset primary dystonia [Recovered/Resolved]

NARRATIVE: CASE EVENT DATE: 201604
